FAERS Safety Report 7135531-7 (Version None)
Quarter: 2010Q4

REPORT INFORMATION
  Report Type: 
  Country: None (occurrence: None)
  Receive Date: 20101203
  Receipt Date: 20101122
  Transmission Date: 20110411
  Serious: Yes (Hospitalization)
  Sender: FDA-Public Use
  Company Number: FR-ELI_LILLY_AND_COMPANY-FR201011005442

PATIENT
  Sex: Female

DRUGS (7)
  1. ZYPREXA [Suspect]
     Indication: MAJOR DEPRESSION
     Dates: end: 20100301
  2. ZYPREXA [Suspect]
     Dosage: 20 MG, DAILY (1/D)
     Route: 048
     Dates: start: 20100808
  3. ZYPREXA [Suspect]
     Dosage: 30 MG, DAILY (1/D)
     Route: 048
     Dates: start: 20101007
  4. LARGACTIL [Concomitant]
     Indication: SCHIZOAFFECTIVE DISORDER
     Dosage: 75 MG, UNK
     Dates: start: 20100920
  5. RIVOTRIL [Concomitant]
     Dosage: 2 MG, UNK
     Dates: start: 20100901
  6. THERALENE [Concomitant]
     Dosage: 30 MG, UNK
     Dates: start: 20100906
  7. IMOVANE [Concomitant]

REACTIONS (2)
  - NEUTROPENIA [None]
  - OVERDOSE [None]
